FAERS Safety Report 5726216-X (Version None)
Quarter: 2008Q2

REPORT INFORMATION
  Report Type: 
  Country: None (occurrence: None)
  Receive Date: 20080502
  Receipt Date: 20080421
  Transmission Date: 20081010
  Serious: Yes (Hospitalization)
  Sender: FDA-Public Use
  Company Number: DE-AMGEN-US275870

PATIENT
  Sex: Male

DRUGS (3)
  1. ENBREL [Suspect]
     Indication: RHEUMATOID ARTHRITIS
     Dosage: ONE INJECTION, DOSE UNKNOWN
     Route: 058
     Dates: start: 20080414
  2. CORTISONE [Concomitant]
     Route: 065
  3. ORAL ANTICOAGULANT NOS [Concomitant]
     Route: 048

REACTIONS (10)
  - ABDOMINAL DISTENSION [None]
  - ARRHYTHMIA [None]
  - CHILLS [None]
  - CONDITION AGGRAVATED [None]
  - DECREASED APPETITE [None]
  - DIARRHOEA [None]
  - FALL [None]
  - HYPOAESTHESIA [None]
  - NAUSEA [None]
  - PNEUMONIA [None]
